FAERS Safety Report 25480586 (Version 4)
Quarter: 2025Q3

REPORT INFORMATION
  Report Type: Spontaneous
  Country: EU (occurrence: EU)
  Receive Date: 20250625
  Receipt Date: 20250827
  Transmission Date: 20251021
  Serious: No
  Sender: PFIZER
  Company Number: EU-PFIZER INC-PV202500075045

PATIENT
  Age: 12 Year
  Sex: Male
  Weight: 39 kg

DRUGS (3)
  1. GENOTROPIN [Suspect]
     Active Substance: SOMATROPIN
     Indication: Growth hormone deficiency
     Route: 058
     Dates: start: 201809
  2. GENOTROPIN [Suspect]
     Active Substance: SOMATROPIN
     Route: 058
     Dates: start: 201809
  3. FOLIC ACID [Concomitant]
     Active Substance: FOLIC ACID
     Indication: Thalassaemia minor
     Dosage: 5 MG, WEEKLY

REACTIONS (3)
  - Device use error [Unknown]
  - Device material issue [Unknown]
  - Drug dose omission by device [Unknown]

NARRATIVE: CASE EVENT DATE: 20250620
